FAERS Safety Report 6962139-6 (Version None)
Quarter: 2010Q3

REPORT INFORMATION
  Report Type: 
  Country: None (occurrence: None)
  Receive Date: 20100902
  Receipt Date: 20100825
  Transmission Date: 20110219
  Serious: Yes (Hospitalization)
  Sender: FDA-Public Use
  Company Number: US-RB-010270-10

PATIENT
  Age: 50 Year
  Sex: Male

DRUGS (5)
  1. SUBOXONE [Suspect]
     Indication: DRUG DEPENDENCE
     Route: 060
     Dates: start: 20100301
  2. OXYCONTIN [Suspect]
     Indication: PRODUCT USED FOR UNKNOWN INDICATION
     Dosage: UNKNOWN DOSING DETAILS
     Route: 065
  3. SEROQUEL [Concomitant]
     Indication: BIPOLAR DISORDER
     Dosage: UNKNOWN DOSING DETAILS
     Route: 065
     Dates: end: 20100601
  4. ZOLOFT [Concomitant]
     Indication: DEPRESSION
     Dosage: UNKNOWN DOSING DETAILS
     Route: 065
     Dates: end: 20100601
  5. XANAX [Concomitant]
     Indication: ANXIETY
     Dosage: UNKNOWN DOSING DETAILS
     Route: 065
     Dates: end: 20100601

REACTIONS (14)
  - ACQUIRED IMMUNODEFICIENCY SYNDROME [None]
  - ASTHENIA [None]
  - CD4 LYMPHOCYTES DECREASED [None]
  - DEPRESSION [None]
  - DISTURBANCE IN ATTENTION [None]
  - DYSPNOEA [None]
  - DYSURIA [None]
  - ENZYME ABNORMALITY [None]
  - FATIGUE [None]
  - HEPATITIS [None]
  - HEPATOMEGALY [None]
  - LOSS OF CONSCIOUSNESS [None]
  - OEDEMA [None]
  - SUICIDE ATTEMPT [None]
